FAERS Safety Report 22288603 (Version 1)
Quarter: 2023Q2

REPORT INFORMATION
  Report Type: Report from Study
  Country: US (occurrence: US)
  Receive Date: 20230505
  Receipt Date: 20230505
  Transmission Date: 20230721
  Serious: Yes (Death)
  Sender: FDA-Public Use
  Company Number: US-ORG100014127-2023000415

PATIENT
  Age: 15 Year
  Sex: Female

DRUGS (7)
  1. METOPIRONE [Suspect]
     Active Substance: METYRAPONE
     Indication: Pituitary-dependent Cushing^s syndrome
     Dosage: 03 TABLETS DAILY
     Dates: start: 20230217
  2. METOPIRONE [Suspect]
     Active Substance: METYRAPONE
     Indication: Pituitary-dependent Cushing^s syndrome
     Dosage: 06 TABLETS DAILY
     Dates: end: 20230422
  3. Famotidine Tab 20mg [Concomitant]
     Indication: Product used for unknown indication
  4. Kepra Tab 250mg [Concomitant]
     Indication: Product used for unknown indication
  5. LISINOPRIL [Concomitant]
     Active Substance: LISINOPRIL
     Indication: Product used for unknown indication
  6. LYSODREN [Concomitant]
     Active Substance: MITOTANE
     Indication: Product used for unknown indication
  7. Miralax pow 3350 NF [Concomitant]
     Indication: Product used for unknown indication

REACTIONS (2)
  - Death [Fatal]
  - Off label use [Recovered/Resolved]

NARRATIVE: CASE EVENT DATE: 20230217
